FAERS Safety Report 17796286 (Version 1)
Quarter: 2020Q2

REPORT INFORMATION
  Report Type: Report from Study
  Country: PK (occurrence: PK)
  Receive Date: 20200517
  Receipt Date: 20200517
  Transmission Date: 20200714
  Serious: Yes (Death, Hospitalization)
  Sender: FDA-Public Use
  Company Number: NVSC2020PK133597

PATIENT
  Sex: Female
  Weight: 52 kg

DRUGS (1)
  1. KISQALI [Suspect]
     Active Substance: RIBOCICLIB
     Indication: BREAST CANCER METASTATIC
     Dosage: 600 MG 3 TABS OD
     Route: 048
     Dates: start: 20200212, end: 20200415

REACTIONS (2)
  - Cardio-respiratory arrest [Fatal]
  - Ill-defined disorder [Unknown]
